FAERS Safety Report 6987710-7 (Version None)
Quarter: 2010Q3

REPORT INFORMATION
  Report Type: 
  Country: None (occurrence: None)
  Receive Date: 20100916
  Receipt Date: 20100615
  Transmission Date: 20110219
  Serious: No
  Sender: FDA-Public Use
  Company Number: US-ABBOTT-10P-163-0649004-00

PATIENT
  Sex: Female

DRUGS (7)
  1. TRILIPIX [Suspect]
     Indication: BLOOD CHOLESTEROL INCREASED
     Dates: start: 20100424, end: 20100606
  2. NORTRIPTYLINE HCL [Suspect]
     Indication: PAIN IN EXTREMITY
     Dates: start: 20100401, end: 20100606
  3. NORTRIPTYLINE HCL [Suspect]
     Indication: ARTHRALGIA
  4. UNKNOWN THYROID MEDICATION [Concomitant]
     Indication: THYROIDECTOMY
  5. DIOVAN [Concomitant]
     Indication: CARDIAC DISORDER
  6. TOPROL-XL [Concomitant]
     Indication: CARDIAC DISORDER
  7. SPIRONOLACTONE [Concomitant]
     Indication: CARDIAC DISORDER

REACTIONS (4)
  - ARTHRALGIA [None]
  - PAIN IN EXTREMITY [None]
  - RASH [None]
  - SKIN EXFOLIATION [None]
